FAERS Safety Report 9686302 (Version 1)
Quarter: 2013Q4

REPORT INFORMATION
  Report Type: Spontaneous
  Country: US (occurrence: US)
  Receive Date: 20131113
  Receipt Date: 20131113
  Transmission Date: 20140711
  Serious: Yes (Other)
  Sender: FDA-Public Use
  Company Number: US-ASTRAZENECA-2013SE82353

PATIENT
  Age: 93 Year
  Sex: Female
  Weight: 40.4 kg

DRUGS (2)
  1. PULMICORT RESPULES [Suspect]
     Indication: DYSPNOEA
     Route: 055
     Dates: start: 20131104
  2. PERFOROMIST [Suspect]
     Indication: DYSPNOEA
     Route: 065
     Dates: start: 20131104

REACTIONS (3)
  - Loss of consciousness [Unknown]
  - Dyspnoea [Unknown]
  - Off label use [Unknown]
